FAERS Safety Report 7224216-4 (Version None)
Quarter: 2011Q1

REPORT INFORMATION
  Report Type: 
  Country: None (occurrence: None)
  Receive Date: 20110106
  Receipt Date: 20110106
  Transmission Date: 20110831
  Serious: Yes (Hospitalization)
  Sender: FDA-Public Use
  Company Number: None

PATIENT
  Sex: Female
  Weight: 90 kg

DRUGS (3)
  1. CARBOPLATIN [Suspect]
     Dosage: 835 MG
     Dates: end: 20101215
  2. TAXOTERE [Suspect]
     Dosage: 148 MG
     Dates: end: 20101215
  3. HERCEPTIN [Suspect]
     Dosage: 186 MG
     Dates: end: 20101215

REACTIONS (2)
  - PYREXIA [None]
  - NEUTROPENIA [None]
